FAERS Safety Report 6171784-X (Version None)
Quarter: 2009Q2

REPORT INFORMATION
  Report Type: 
  Country: None (occurrence: None)
  Receive Date: 20090429
  Receipt Date: 20090420
  Transmission Date: 20091009
  Serious: Yes (Hospitalization)
  Sender: FDA-Public Use
  Company Number: FR-B.I. PHARMACEUTICALS,INC./RIDGEFIELD-2009-FF-00184FF

PATIENT
  Sex: Male
  Weight: 80 kg

DRUGS (7)
  1. SPIRIVA [Suspect]
     Indication: CHRONIC OBSTRUCTIVE PULMONARY DISEASE
     Dosage: 18MCG
     Route: 055
     Dates: start: 20090210, end: 20090223
  2. PLAVIX [Concomitant]
  3. DISOPYRAMIDE [Concomitant]
  4. TRIVASTAL [Concomitant]
  5. PRAVASTATIN [Concomitant]
  6. LASIX [Concomitant]
  7. NICARDIPINE HCL [Concomitant]

REACTIONS (3)
  - DYSURIA [None]
  - INCONTINENCE [None]
  - POLLAKIURIA [None]
